FAERS Safety Report 5551600-7 (Version None)
Quarter: 2007Q4

REPORT INFORMATION
  Report Type: 
  Country: None (occurrence: None)
  Receive Date: 20071212
  Receipt Date: 20071201
  Transmission Date: 20080405
  Serious: Yes (Hospitalization, Other)
  Sender: FDA-Public Use
  Company Number: US-PFIZER INC-2007061186

PATIENT
  Sex: Female
  Weight: 55 kg

DRUGS (5)
  1. DEPO-PROVERA SUSPENSION/INJ [Suspect]
     Indication: CONTRACEPTION
     Route: 030
  2. RISPERDAL [Suspect]
     Indication: SCHIZOPHRENIA
     Dosage: DAILY DOSE:37.5MG-FREQ:EVERY 2 WEEKS
     Route: 030
     Dates: start: 20070528
  3. BENZTROPINE MESYLATE [Concomitant]
     Dosage: DAILY DOSE:1MG-FREQ:3 TIMES DAILY
  4. LORAZEPAM [Concomitant]
     Dosage: DAILY DOSE:1MG-FREQ:3 TIMES DAILY
  5. OXYBUTYNIN CHLORIDE [Concomitant]
     Dosage: DAILY DOSE:5MG-FREQ:DAILY

REACTIONS (2)
  - BLOOD PROLACTIN INCREASED [None]
  - SCHIZOPHRENIA [None]
